FAERS Safety Report 22636035 (Version 2)
Quarter: 2023Q2

REPORT INFORMATION
  Report Type: Spontaneous
  Country: CN (occurrence: CN)
  Receive Date: 20230623
  Receipt Date: 20230628
  Transmission Date: 20230721
  Serious: Yes (Hospitalization, Other)
  Sender: FDA-Public Use
  Company Number: CN-PFIZER INC-PV202300109510

PATIENT
  Age: 103 Month
  Sex: Male
  Weight: 25 kg

DRUGS (1)
  1. SOMATROPIN [Suspect]
     Active Substance: SOMATROPIN
     Indication: Growth hormone deficiency
     Dosage: 3 IU/DL (0.12 IU/KG.D), INJECTED, EVERY NIGHT
     Route: 042

REACTIONS (3)
  - Type 1 diabetes mellitus [Recovered/Resolved]
  - Diabetic ketoacidosis [Recovered/Resolved]
  - Off label use [Unknown]
